FAERS Safety Report 19975222 (Version 1)
Quarter: 2021Q4

REPORT INFORMATION
  Report Type: Report from Study
  Country: IT (occurrence: IT)
  Receive Date: 20211020
  Receipt Date: 20211020
  Transmission Date: 20220303
  Serious: Yes (Hospitalization)
  Sender: FDA-Public Use
  Company Number: IT-GLAXOSMITHKLINE-2019-TSO02495-IT

PATIENT
  Age: 60 Year
  Sex: Female

DRUGS (6)
  1. ARIXTRA [Suspect]
     Active Substance: FONDAPARINUX SODIUM
     Indication: Embolism venous
     Dosage: 7.5 MILLILITER, QD
     Route: 058
     Dates: start: 20190703
  2. ACETAMINOPHEN [Concomitant]
     Active Substance: ACETAMINOPHEN
     Indication: Back pain
     Dosage: 2000 MILLIGRAM, QD (1000 MG, BID)
     Route: 048
     Dates: start: 20190703
  3. PALEXIA [Concomitant]
     Active Substance: TAPENTADOL HYDROCHLORIDE
     Indication: Back pain
     Dosage: 500 MILLIGRAM, QD (250 MG, BID)
     Route: 048
     Dates: start: 20190610
  4. TICHE [Concomitant]
     Indication: Thyroiditis
     Dosage: 88 MICROGRAM, QD (88 ?G, QD)
     Route: 048
     Dates: start: 20190703
  5. LEVOTHYROXINE SODIUM [Concomitant]
     Active Substance: LEVOTHYROXINE SODIUM
     Indication: Thyroiditis
     Dosage: 75 MILLIGRAM, QD
     Route: 048
     Dates: start: 20190611, end: 20190702
  6. OXYCONTIN [Concomitant]
     Active Substance: OXYCODONE HYDROCHLORIDE
     Indication: Back pain
     Dosage: 20 MILLIGRAM, QD (10 MG, BID)
     Route: 048
     Dates: start: 20190703

REACTIONS (1)
  - Haematuria [Recovered/Resolved with Sequelae]

NARRATIVE: CASE EVENT DATE: 20190709
